FAERS Safety Report 8577596-1 (Version None)
Quarter: 2012Q3

REPORT INFORMATION
  Report Type: 
  Country: None (occurrence: None)
  Receive Date: 20120807
  Receipt Date: 20120803
  Transmission Date: 20120928
  Serious: Yes (Life-Threatening, Hospitalization)
  Sender: FDA-Public Use
  Company Number: US-AMGEN-STX319596

PATIENT
  Age: 46 Year
  Sex: Male
  Weight: 85.28 kg

DRUGS (7)
  1. NORTRIPTYLINE HCL [Concomitant]
     Dosage: 75 MG, BID
     Route: 048
  2. CINACALCET HYDROCHLORIDE [Suspect]
     Indication: HYPERPARATHYROIDISM SECONDARY
     Dosage: UNK BLINDED, QD
     Route: 048
     Dates: start: 20070706
  3. POTASSIUM CHLORIDE [Concomitant]
     Dosage: 20 MEQ, QD
     Route: 048
  4. METOPROLOL TARTRATE [Concomitant]
     Dosage: 100 MG, BID
     Route: 048
  5. ACETAMINOPHEN [Concomitant]
     Dosage: 650 MG, PRN
     Route: 048
  6. ESOMEPRAZOLE [Concomitant]
     Dosage: 40 MG, UNK
     Route: 048
  7. IBUPROFEN [Concomitant]
     Dosage: 200 MG, QD

REACTIONS (4)
  - DEVICE RELATED INFECTION [None]
  - HYPOKALAEMIA [None]
  - ATRIAL FLUTTER [None]
  - PERITONITIS [None]
